FAERS Safety Report 6417957-X (Version None)
Quarter: 2009Q4

REPORT INFORMATION
  Report Type: 
  Country: None (occurrence: None)
  Receive Date: 20091028
  Receipt Date: 20091019
  Transmission Date: 20100525
  Serious: Yes (Hospitalization)
  Sender: FDA-Public Use
  Company Number: CA-JNJFOC-20090307250

PATIENT
  Sex: Male
  Weight: 94 kg

DRUGS (3)
  1. REMICADE [Suspect]
     Dosage: 12 INFUSIONS
     Route: 042
  2. REMICADE [Suspect]
     Indication: CROHN'S DISEASE
     Dosage: 12 INFUSIONS
     Route: 042
  3. COLESTID [Concomitant]

REACTIONS (2)
  - ANAL FISSURE [None]
  - GASTROENTERITIS VIRAL [None]
